FAERS Safety Report 16750187 (Version 1)
Quarter: 2019Q4

REPORT INFORMATION
  Report Type: Spontaneous
  Country: US (occurrence: US)
  Receive Date: 20190827
  Receipt Date: 20190827
  Transmission Date: 20200122
  Serious: Yes (Hospitalization, Disabling)
  Sender: FDA-Public Use
  Company Number: None

PATIENT
  Age: 23 Year
  Sex: Female
  Weight: 74.25 kg

DRUGS (1)
  1. EMGALITY [Suspect]
     Active Substance: GALCANEZUMAB-GNLM
     Indication: MIGRAINE WITH AURA

REACTIONS (9)
  - Anxiety [None]
  - Cerebrovascular disorder [None]
  - Chest pain [None]
  - Depression [None]
  - Constipation [None]
  - Heart rate abnormal [None]
  - Weight increased [None]
  - Migraine [None]
  - Mobility decreased [None]

NARRATIVE: CASE EVENT DATE: 20190701
